FAERS Safety Report 21674039 (Version 1)
Quarter: 2022Q4

REPORT INFORMATION
  Report Type: Spontaneous
  Country: US (occurrence: US)
  Receive Date: 20221202
  Receipt Date: 20221202
  Transmission Date: 20230113
  Serious: No
  Sender: FDA-Public Use
  Company Number: US-Flexion Therapeutics, Inc.-2021FLS000147

PATIENT
  Age: 80 Year
  Sex: Female

DRUGS (5)
  1. ZILRETTA [Suspect]
     Active Substance: TRIAMCINOLONE ACETONIDE
     Indication: Osteoarthritis
     Route: 014
     Dates: start: 202107, end: 202107
  2. LATANOPROST [Concomitant]
     Active Substance: LATANOPROST
     Indication: Glaucoma
  3. METFORMIN [Concomitant]
     Active Substance: METFORMIN HYDROCHLORIDE
     Indication: Diabetes mellitus
  4. LEVOTHYROXINE [Concomitant]
     Active Substance: LEVOTHYROXINE
     Indication: Thyroid disorder
  5. ATORVASTATIN [Concomitant]
     Active Substance: ATORVASTATIN
     Indication: Blood cholesterol increased

REACTIONS (1)
  - Intraocular pressure increased [Not Recovered/Not Resolved]

NARRATIVE: CASE EVENT DATE: 20211011
